FAERS Safety Report 12772116 (Version 7)
Quarter: 2017Q1

REPORT INFORMATION
  Report Type: Report from Study
  Country: CA (occurrence: CA)
  Receive Date: 20160922
  Receipt Date: 20170213
  Transmission Date: 20170428
  Serious: Yes (Other)
  Sender: FDA-Public Use
  Company Number: CA-JNJFOC-20160814942

PATIENT
  Age: 68 Year
  Sex: Male

DRUGS (1)
  1. IMBRUVICA [Suspect]
     Active Substance: IBRUTINIB
     Indication: MANTLE CELL LYMPHOMA
     Route: 048
     Dates: start: 20160805, end: 20170205

REACTIONS (17)
  - Muscular weakness [Unknown]
  - Blister [Recovering/Resolving]
  - Dyspnoea exertional [Unknown]
  - Asthenia [Recovered/Resolved]
  - Intestinal ulcer [Unknown]
  - Fatigue [Not Recovered/Not Resolved]
  - Weight decreased [Unknown]
  - Decreased appetite [Not Recovered/Not Resolved]
  - Dizziness [Not Recovered/Not Resolved]
  - Poor quality sleep [Unknown]
  - Haemoglobin decreased [Unknown]
  - Night sweats [Unknown]
  - Acne [Recovering/Resolving]
  - Asthenia [Recovering/Resolving]
  - Haematochezia [Unknown]
  - Weight increased [Unknown]
  - Contusion [Recovering/Resolving]

NARRATIVE: CASE EVENT DATE: 2016
